FAERS Safety Report 13665999 (Version 3)
Quarter: 2018Q2

REPORT INFORMATION
  Report Type: Spontaneous
  Country: US (occurrence: US)
  Receive Date: 20170619
  Receipt Date: 20180413
  Transmission Date: 20180711
  Serious: Yes (Death, Hospitalization)
  Sender: FDA-Public Use
  Company Number: US-ACTELION-A-NJ2017-155267

PATIENT
  Age: 86 Year
  Sex: Male

DRUGS (5)
  1. TAMSULIN [Concomitant]
  2. TRACLEER [Suspect]
     Active Substance: BOSENTAN
     Indication: PULMONARY ARTERIAL HYPERTENSION
     Dosage: 125 MG, BID
     Route: 048
     Dates: start: 20161122
  3. DIGOX [Concomitant]
     Active Substance: DIGOXIN
  4. TRACLEER [Suspect]
     Active Substance: BOSENTAN
     Dosage: 62.5 UNK, UNK
     Route: 048
     Dates: start: 20090130
  5. LEVOTHYROXIN [Concomitant]
     Active Substance: LEVOTHYROXINE

REACTIONS (5)
  - Dysphagia [Unknown]
  - Throat tightness [Unknown]
  - Death [Fatal]
  - Hiatus hernia [Recovered/Resolved]
  - Cardiac failure congestive [Recovered/Resolved]

NARRATIVE: CASE EVENT DATE: 20180126
